FAERS Safety Report 8290520-4 (Version None)
Quarter: 2012Q2

REPORT INFORMATION
  Report Type: 
  Country: None (occurrence: None)
  Receive Date: 20120417
  Receipt Date: 20110711
  Transmission Date: 20120825
  Serious: No
  Sender: FDA-Public Use
  Company Number: US-ASTRAZENECA-2011SE40551

PATIENT
  Age: 39 Year
  Sex: Female

DRUGS (4)
  1. PREVACID [Concomitant]
  2. NEXIUM [Suspect]
     Route: 048
  3. SEROQUEL XR [Suspect]
     Route: 048
  4. PROTONIX [Concomitant]

REACTIONS (3)
  - DYSPEPSIA [None]
  - DRUG DOSE OMISSION [None]
  - HIATUS HERNIA [None]
